FAERS Safety Report 9031853 (Version 1)
Quarter: 2013Q1

REPORT INFORMATION
  Report Type: Spontaneous
  Country: DE (occurrence: DE)
  Receive Date: 20130124
  Receipt Date: 20130124
  Transmission Date: 20140127
  Serious: Yes (Other)
  Sender: FDA-Public Use
  Company Number: DE-ELI_LILLY_AND_COMPANY-DE201301003904

PATIENT
  Age: 73 Year
  Sex: Male

DRUGS (5)
  1. HUMALOG LISPRO [Suspect]
     Indication: DIABETES MELLITUS
     Dosage: UNK, PRN
     Route: 058
  2. ASS [Concomitant]
  3. VALSARTAN [Concomitant]
     Dosage: 80 MG, UNK
  4. EZETROL [Concomitant]
  5. PANTOPRAZOL [Concomitant]

REACTIONS (1)
  - Cerebrovascular accident [Unknown]
